FAERS Safety Report 15042664 (Version 2)
Quarter: 2018Q2

REPORT INFORMATION
  Report Type: Spontaneous
  Country: CH (occurrence: CH)
  Receive Date: 20180621
  Receipt Date: 20180621
  Transmission Date: 20180711
  Serious: Yes (Hospitalization)
  Sender: FDA-Public Use
  Company Number: CH-BAYER-2018-113669

PATIENT
  Age: 60 Year
  Sex: Male

DRUGS (11)
  1. CARBOPLATIN. [Suspect]
     Active Substance: CARBOPLATIN
     Indication: LUNG ADENOCARCINOMA
     Dosage: 497 MG, NUMBER OF SEPARATE DOSAGES: 3
     Route: 051
     Dates: start: 20171102, end: 20171215
  2. XGEVA [Concomitant]
     Active Substance: DENOSUMAB
     Dosage: 120 MG, NUMBER OF SEPARATE DOSAGES: 5
     Dates: start: 20011111, end: 20180315
  3. CALCIUM ACETATE. [Concomitant]
     Active Substance: CALCIUM ACETATE
     Dosage: 2 DF, TID
     Dates: start: 20180531
  4. ACIDUM FOLICUM [Concomitant]
     Active Substance: FOLIC ACID
     Dates: end: 20180522
  5. ATORVASTATIN [Suspect]
     Active Substance: ATORVASTATIN
     Indication: CORONARY ARTERY DISEASE
     Dosage: 40 MG, QD
     Route: 048
     Dates: start: 201709, end: 2018
  6. ASPIRIN CARDIO 100 MG [Suspect]
     Active Substance: ASPIRIN
     Indication: CORONARY ARTERY DISEASE
     Dosage: 100 MG, QD, LONG TERM THERAPY
     Route: 048
     Dates: end: 20180522
  7. AMLODIPINE [Concomitant]
     Active Substance: AMLODIPINE BESYLATE
     Dosage: 5 MG, QD
  8. PANTOPRAZOLE [Concomitant]
     Active Substance: PANTOPRAZOLE
     Dosage: 40 MG, BID
  9. NEPHROTRANS [Concomitant]
     Active Substance: SODIUM BICARBONATE
     Dosage: 2 DF, TID
     Dates: start: 20180604
  10. ALIMTA [Suspect]
     Active Substance: PEMETREXED DISODIUM
     Indication: LUNG ADENOCARCINOMA
     Dosage: 869 MG, NUMBER OF SEPARATE DOSAGES: 4
     Route: 051
     Dates: start: 20171102, end: 20171108
  11. ALIMTA [Suspect]
     Active Substance: PEMETREXED DISODIUM
     Indication: LUNG ADENOCARCINOMA
     Dosage: 869 MG, NUMBER OF SEPARATE DOSAGES: 5
     Route: 051
     Dates: start: 20180201, end: 20180426

REACTIONS (2)
  - Acute kidney injury [Unknown]
  - Blood creatinine increased [Not Recovered/Not Resolved]

NARRATIVE: CASE EVENT DATE: 201801
